FAERS Safety Report 17363120 (Version 1)
Quarter: 2020Q1

REPORT INFORMATION
  Report Type: Spontaneous
  Country: HU (occurrence: HU)
  Receive Date: 20200203
  Receipt Date: 20200203
  Transmission Date: 20200409
  Serious: Yes (Other)
  Sender: FDA-Public Use
  Company Number: NVSC2019HU086855

PATIENT
  Age: 23 Year
  Sex: Female

DRUGS (2)
  1. BRINZOLAMIDE [Suspect]
     Active Substance: BRINZOLAMIDE
     Indication: INTRAOCULAR PRESSURE INCREASED
     Dosage: UNK, TID
     Route: 065
  2. BRIMONIDINE [Concomitant]
     Active Substance: BRIMONIDINE TARTRATE
     Indication: INTRAOCULAR PRESSURE INCREASED
     Dosage: UNK, BID
     Route: 065

REACTIONS (5)
  - Posterior capsule opacification [Unknown]
  - Visual field tests abnormal [Unknown]
  - Pain [Unknown]
  - Intraocular pressure increased [Unknown]
  - Eye disorder [Unknown]

NARRATIVE: CASE EVENT DATE: 201701
